FAERS Safety Report 6827898-1 (Version None)
Quarter: 2010Q3

REPORT INFORMATION
  Report Type: 
  Country: None (occurrence: None)
  Receive Date: 20100709
  Receipt Date: 20100615
  Transmission Date: 20110219
  Serious: Yes (Life-Threatening, Hospitalization, Other)
  Sender: FDA-Public Use
  Company Number: A0865271A

PATIENT
  Age: 31 Year
  Sex: Male

DRUGS (2)
  1. REQUIP [Suspect]
     Indication: RESTLESS LEGS SYNDROME
     Dosage: 3MG SINGLE DOSE
     Route: 048
     Dates: start: 20100614, end: 20100614
  2. HYDROCHLOROTHIAZIDE [Concomitant]

REACTIONS (1)
  - GRAND MAL CONVULSION [None]
